FAERS Safety Report 5474012-3 (Version None)
Quarter: 2007Q3

REPORT INFORMATION
  Report Type: 
  Country: None (occurrence: None)
  Receive Date: 20070928
  Receipt Date: 20070928
  Transmission Date: 20080115
  Serious: No
  Sender: FDA-Public Use
  Company Number: None

PATIENT
  Age: 36 Year
  Sex: Male
  Weight: 100.7 kg

DRUGS (5)
  1. BENICAR [Suspect]
     Indication: DIABETES MELLITUS
     Dosage: AVAPRO 150 MG BID
     Route: 048
     Dates: start: 20070318, end: 20070319
  2. AVAPRO [Suspect]
     Indication: HYPERTENSION
     Dosage: 150 MG BID
     Dates: start: 20070320, end: 20070321
  3. HUMULIN N [Concomitant]
  4. BENICAR [Concomitant]
  5. EYE DROPS [Concomitant]

REACTIONS (5)
  - DIABETES MELLITUS [None]
  - FALL [None]
  - RENAL FAILURE CHRONIC [None]
  - RHABDOMYOLYSIS [None]
  - SYNCOPE [None]
